FAERS Safety Report 9228227 (Version 2)
Quarter: 2013Q2

REPORT INFORMATION
  Report Type: Spontaneous
  Country: DE (occurrence: DE)
  Receive Date: 20130412
  Receipt Date: 20130513
  Transmission Date: 20140414
  Serious: Yes (Other)
  Sender: FDA-Public Use
  Company Number: DE-ROCHE-1210545

PATIENT
  Age: 20 Year
  Sex: Female
  Weight: 48 kg

DRUGS (7)
  1. ACTILYSE [Suspect]
     Indication: PORTAL VEIN THROMBOSIS
     Dosage: 2 HOURS
     Route: 042
  2. ACTILYSE [Suspect]
     Indication: SPLENIC VEIN THROMBOSIS
  3. ACTILYSE [Suspect]
     Indication: MESENTERIC VEIN THROMBOSIS
  4. HEPARIN [Suspect]
     Indication: PORTAL VEIN THROMBOSIS
     Route: 042
  5. HEPARIN [Suspect]
     Indication: SPLENIC VEIN THROMBOSIS
  6. HEPARIN [Suspect]
     Indication: MESENTERIC VEIN THROMBOSIS
  7. PREDNISOLONE [Concomitant]
     Route: 065

REACTIONS (3)
  - Venous thrombosis [Unknown]
  - Splenic infarction [Unknown]
  - Superior sagittal sinus thrombosis [Unknown]
